FAERS Safety Report 8540154-9 (Version None)
Quarter: 2012Q3

REPORT INFORMATION
  Report Type: 
  Country: None (occurrence: None)
  Receive Date: 20120726
  Receipt Date: 20120723
  Transmission Date: 20120928
  Serious: Yes (Other)
  Sender: FDA-Public Use
  Company Number: GB-ROCHE-1056349

PATIENT
  Age: 75 Year
  Sex: Male
  Weight: 77.9 kg

DRUGS (9)
  1. VEMURAFENIB [Suspect]
     Indication: MALIGNANT MELANOMA
     Dosage: DATE OF LAST DOSE PRIOR TO SAE: 16/MAR/2012
     Route: 048
     Dates: start: 20120105, end: 20120309
  2. FUCIBET CREAM [Concomitant]
     Dates: start: 20120405
  3. VEMURAFENIB [Suspect]
     Dosage: DATE OF LAST DOSE PRIOR TO SAE: 04/APR/2012
     Route: 048
     Dates: start: 20120405
  4. COD LIVER OIL [Concomitant]
     Dates: start: 20110101
  5. AVEENO CREAM [Concomitant]
     Dates: start: 20120202
  6. VEMURAFENIB [Suspect]
     Dates: start: 20120315, end: 20120316
  7. VEMURAFENIB [Suspect]
     Dates: end: 20120329
  8. GLUCOSAMINE/CHONDROITIN [Concomitant]
     Dates: start: 20110101
  9. NYSTATIN [Concomitant]
     Dates: start: 20120218, end: 20120426

REACTIONS (2)
  - BLOOD CREATININE INCREASED [None]
  - SQUAMOUS CELL CARCINOMA OF SKIN [None]
